FAERS Safety Report 8909574 (Version 2)
Quarter: 2014Q2

REPORT INFORMATION
  Report Type: Spontaneous
  Country: US (occurrence: US)
  Receive Date: 20121115
  Receipt Date: 20140620
  Transmission Date: 20141212
  Serious: Yes (Other)
  Sender: FDA-Public Use
  Company Number: US-AMGEN-USASP2012071447

PATIENT
  Sex: Male

DRUGS (2)
  1. XGEVA [Suspect]
     Indication: PROSTATIC DISORDER
     Dosage: UNK
     Route: 065
     Dates: start: 201204
  2. FIRMAGON                           /01764801/ [Suspect]
     Route: 065

REACTIONS (4)
  - Cataract [Not Recovered/Not Resolved]
  - Swelling [Unknown]
  - Influenza [Unknown]
  - Hypersensitivity [Unknown]
